FAERS Safety Report 8549262-X (Version None)
Quarter: 2012Q3

REPORT INFORMATION
  Report Type: 
  Country: None (occurrence: None)
  Receive Date: 20120730
  Receipt Date: 20120727
  Transmission Date: 20120928
  Serious: Yes (Death, Other)
  Sender: FDA-Public Use
  Company Number: PHHY2012JP061964

PATIENT
  Age: 64 Year
  Sex: Male

DRUGS (2)
  1. NEORAL [Suspect]
     Indication: DERMATOMYOSITIS
     Route: 048
  2. CYCLOPHOSPHAMIDE [Concomitant]
     Route: 042

REACTIONS (2)
  - CYTOMEGALOVIRUS INFECTION [None]
  - INTERSTITIAL LUNG DISEASE [None]
